FAERS Safety Report 6838505-6 (Version None)
Quarter: 2010Q3

REPORT INFORMATION
  Report Type: 
  Country: None (occurrence: None)
  Receive Date: 20100713
  Receipt Date: 20070612
  Transmission Date: 20110219
  Serious: No
  Sender: FDA-Public Use
  Company Number: US-PFIZER INC-2007049556

PATIENT
  Sex: Male
  Weight: 90.7 kg

DRUGS (8)
  1. CHANTIX [Suspect]
     Indication: SMOKING CESSATION THERAPY
     Dates: start: 20070401
  2. ALL OTHER THERAPEUTIC PRODUCTS [Interacting]
  3. NEXIUM [Concomitant]
  4. PLAVIX [Concomitant]
  5. ACETYLSALICYLIC ACID [Concomitant]
  6. XANAX [Concomitant]
  7. BENICAR [Concomitant]
  8. OXSORALEN [Concomitant]

REACTIONS (2)
  - DRUG INTERACTION [None]
  - NAUSEA [None]
